FAERS Safety Report 24003791 (Version 1)
Quarter: 2024Q2

REPORT INFORMATION
  Report Type: Spontaneous
  Country: DE (occurrence: DE)
  Receive Date: 20240624
  Receipt Date: 20240624
  Transmission Date: 20240715
  Serious: Yes (Life-Threatening, Other)
  Sender: FDA-Public Use
  Company Number: DE-EMA-DD-20240611-7482677-091301

PATIENT
  Age: 52 Year
  Sex: Male

DRUGS (2)
  1. DICLOFENAC [Suspect]
     Active Substance: DICLOFENAC
     Indication: Back pain
     Dosage: UNK
     Route: 065
  2. METAMIZOL [Suspect]
     Active Substance: METAMIZOLE SODIUM
     Indication: Back pain
     Dosage: UNK
     Route: 065

REACTIONS (11)
  - Myelosuppression [Recovered/Resolved]
  - Pneumonia [Recovered/Resolved]
  - Leukopenia [Unknown]
  - Cholestasis [Unknown]
  - Thrombocytopenia [Unknown]
  - Renal failure [Unknown]
  - Respiratory disorder [Unknown]
  - Nausea [Unknown]
  - Pyrexia [Unknown]
  - Dyspnoea [Unknown]
  - Disorientation [Unknown]

NARRATIVE: CASE EVENT DATE: 19920906
